FAERS Safety Report 8010161-3 (Version None)
Quarter: 2011Q4

REPORT INFORMATION
  Report Type: 
  Country: None (occurrence: None)
  Receive Date: 20111221
  Receipt Date: 20111208
  Transmission Date: 20120403
  Serious: Yes (Other)
  Sender: FDA-Public Use
  Company Number: 20110851

PATIENT
  Age: 33 Year
  Sex: Female

DRUGS (4)
  1. DESVENLAFAXINE [Concomitant]
  2. VENLAFAXINE [Suspect]
     Indication: DEPRESSION
     Dosage: 37.5 MG 3/DAY UP TO, 150 MG/DAY
  3. CYCLOSPORINE [Suspect]
     Indication: IMMUNOSUPPRESSION
  4. TACROLIMUS [Concomitant]

REACTIONS (2)
  - HYPERTENSION [None]
  - SEROTONIN SYNDROME [None]
